FAERS Safety Report 21435477 (Version 3)
Quarter: 2024Q1

REPORT INFORMATION
  Report Type: Report from Study
  Country: US (occurrence: US)
  Receive Date: 20221010
  Receipt Date: 20240302
  Transmission Date: 20240410
  Serious: Yes (Other)
  Sender: FDA-Public Use
  Company Number: US-JAZZ-2022-US-031570

PATIENT
  Sex: Male

DRUGS (19)
  1. XYREM [Suspect]
     Active Substance: SODIUM OXYBATE
     Indication: Narcolepsy
     Dosage: UNK
  2. XYREM [Suspect]
     Active Substance: SODIUM OXYBATE
     Indication: Cataplexy
  3. XYREM [Suspect]
     Active Substance: SODIUM OXYBATE
     Indication: Somnolence
  4. FUROSEMIDE [Suspect]
     Active Substance: FUROSEMIDE
     Indication: Product used for unknown indication
     Dosage: UNK
  5. TORSEMIDE [Suspect]
     Active Substance: TORSEMIDE
     Indication: Product used for unknown indication
     Dosage: UNK
  6. PRAVASTATIN [Suspect]
     Active Substance: PRAVASTATIN
     Indication: Low density lipoprotein increased
     Dosage: 20 MILLIGRAM, TID
     Dates: start: 20221030
  7. PRAVASTATIN [Suspect]
     Active Substance: PRAVASTATIN
     Dosage: 10 MILLIGRAM, TID
  8. PROPRANOLOL [Suspect]
     Active Substance: PROPRANOLOL HYDROCHLORIDE
     Indication: Cluster headache
     Dosage: UNK UNK, QID
  9. QUININE [Suspect]
     Active Substance: QUININE
     Indication: Product used for unknown indication
  10. GABAPENTIN [Concomitant]
     Active Substance: GABAPENTIN
     Indication: Product used for unknown indication
     Dosage: 600 MG TABLET
     Dates: start: 20201113
  11. GABAPENTIN [Concomitant]
     Active Substance: GABAPENTIN
     Dosage: 100 MG CAPSULE
     Dates: start: 20210423
  12. BUDESONIDE [Concomitant]
     Active Substance: BUDESONIDE
     Indication: Product used for unknown indication
     Dosage: 0000
     Dates: start: 20200529
  13. FLUCONAZOLE [Concomitant]
     Active Substance: FLUCONAZOLE
     Indication: Product used for unknown indication
     Dosage: 0000
     Dates: start: 20201124
  14. ACYCLOVIR [Concomitant]
     Active Substance: ACYCLOVIR
     Indication: Product used for unknown indication
     Dosage: 0000
     Dates: start: 20190807
  15. PRALUENT [Concomitant]
     Active Substance: ALIROCUMAB
     Indication: Product used for unknown indication
     Dosage: 75 MG/ML PEN
     Dates: start: 20200921
  16. TESTOSTERONE CYPIONATE [Concomitant]
     Active Substance: TESTOSTERONE CYPIONATE
     Indication: Product used for unknown indication
     Dosage: MICRO POWDER
     Dates: start: 20151111
  17. BACTRIM DS [Concomitant]
     Active Substance: SULFAMETHOXAZOLE\TRIMETHOPRIM
     Indication: Product used for unknown indication
     Dosage: 0000
     Dates: start: 20210517
  18. VITAMIN D3 [Concomitant]
     Active Substance: CHOLECALCIFEROL
     Indication: Product used for unknown indication
     Dosage: 5000 INTERNATIONAL UNIT, THREE TIMES A WEEK
     Dates: start: 20210513
  19. CHLORTHALIDONE [Concomitant]
     Active Substance: CHLORTHALIDONE
     Indication: Product used for unknown indication
     Dosage: UNK
     Dates: start: 20240101

REACTIONS (16)
  - Cauda equina syndrome [Unknown]
  - Neuropathic arthropathy [Unknown]
  - Hypoxia [Recovered/Resolved]
  - Spinal fusion surgery [Unknown]
  - Migraine [Unknown]
  - Blood creatinine increased [Unknown]
  - Oedema [Unknown]
  - Muscle spasms [Unknown]
  - Tinnitus [Unknown]
  - Tenderness [Unknown]
  - Blood creatine phosphokinase increased [Unknown]
  - Musculoskeletal discomfort [Unknown]
  - Low density lipoprotein increased [Recovered/Resolved]
  - Dental implantation [Unknown]
  - Arteriosclerosis [Unknown]
  - Amnesia [Unknown]

NARRATIVE: CASE EVENT DATE: 20190101
